FAERS Safety Report 11570206 (Version 5)
Quarter: 2017Q3

REPORT INFORMATION
  Report Type: Spontaneous
  Country: US (occurrence: US)
  Receive Date: 20150929
  Receipt Date: 20170828
  Transmission Date: 20171127
  Serious: Yes (Hospitalization)
  Sender: FDA-Public Use
  Company Number: US-PFIZER INC-2015319519

PATIENT
  Age: 9 Year
  Sex: Female
  Weight: 31.5 kg

DRUGS (3)
  1. HYDROCORTISONE. [Concomitant]
     Active Substance: HYDROCORTISONE
     Dosage: UNK
     Route: 061
  2. SULFAMETHOXAZOLE/TRIMETHOPRIM [Suspect]
     Active Substance: SULFAMETHOXAZOLE\TRIMETHOPRIM
     Dosage: UNK
  3. DIPHENHYDRAMINE. [Concomitant]
     Active Substance: DIPHENHYDRAMINE
     Dosage: UNK
     Route: 048

REACTIONS (10)
  - Myalgia [Unknown]
  - Vomiting [None]
  - Rash [None]
  - Abdominal pain upper [None]
  - Drug hypersensitivity [None]
  - Pyrexia [Unknown]
  - Dyspnoea [Unknown]
  - Nausea [None]
  - Hypophagia [None]
  - Anxiety [None]
